FAERS Safety Report 8875490 (Version 1)
Quarter: 2012Q4

REPORT INFORMATION
  Report Type: Report from Study
  Country: US (occurrence: US)
  Receive Date: 20121030
  Receipt Date: 20121030
  Transmission Date: 20130627
  Serious: No
  Sender: FDA-Public Use
  Company Number: US-ABBOTT-12P-163-0975828-00

PATIENT
  Sex: Female
  Weight: 76.27 kg

DRUGS (1)
  1. LUPRON DEPOT [Suspect]
     Indication: UTERINE LEIOMYOMA
     Dates: start: 201206

REACTIONS (7)
  - Hot flush [Recovered/Resolved]
  - Irritability [Recovered/Resolved]
  - Abnormal dreams [Unknown]
  - Nightmare [Unknown]
  - Disturbance in attention [Unknown]
  - Insomnia [Unknown]
  - Vaginal haemorrhage [Unknown]
